FAERS Safety Report 19077619 (Version 4)
Quarter: 2022Q4

REPORT INFORMATION
  Report Type: Spontaneous
  Country: US (occurrence: US)
  Receive Date: 20210331
  Receipt Date: 20221017
  Transmission Date: 20230113
  Serious: Yes (Other)
  Sender: FDA-Public Use
  Company Number: US-PFIZER INC-2021338198

PATIENT
  Age: 68 Year
  Sex: Female

DRUGS (2)
  1. XELJANZ [Suspect]
     Active Substance: TOFACITINIB CITRATE
     Dosage: 5 MG
  2. XELJANZ [Suspect]
     Active Substance: TOFACITINIB CITRATE
     Dosage: 10 MG (2 TABLETS OF 5 MG), DAILY

REACTIONS (8)
  - Fall [Unknown]
  - Hand fracture [Unknown]
  - Pain [Unknown]
  - Bronchitis [Unknown]
  - Root canal infection [Unknown]
  - Fungal infection [Unknown]
  - Diarrhoea [Unknown]
  - Illness [Unknown]
